FAERS Safety Report 4758674-1 (Version None)
Quarter: 2005Q3

REPORT INFORMATION
  Report Type: 
  Country: None (occurrence: None)
  Receive Date: 20050826
  Receipt Date: 20050812
  Transmission Date: 20060218
  Serious: Yes (Hospitalization)
  Sender: FDA-Public Use
  Company Number: 2005PV001014

PATIENT
  Age: 72 Year
  Sex: Male
  Weight: 105.2345 kg

DRUGS (9)
  1. BYETTA [Suspect]
     Indication: DIABETES MELLITUS NON-INSULIN-DEPENDENT
     Dosage: SEE IMAGE
     Route: 058
     Dates: start: 20050629, end: 20050728
  2. BYETTA [Suspect]
     Indication: DIABETES MELLITUS NON-INSULIN-DEPENDENT
     Dosage: SEE IMAGE
     Route: 058
     Dates: start: 20050728, end: 20050801
  3. LANTUS [Concomitant]
  4. LANTUS [Concomitant]
  5. HUMALOG [Concomitant]
  6. TOPROL-XL [Concomitant]
  7. PLAVIX [Concomitant]
  8. TRICOR [Concomitant]
  9. LISINOPRIL W/HYDROCHLOROTHIAZIDE [Concomitant]

REACTIONS (4)
  - CARDIAC VENTRICULAR DISORDER [None]
  - CONDITION AGGRAVATED [None]
  - DYSPNOEA [None]
  - RENAL IMPAIRMENT [None]
